FAERS Safety Report 17451065 (Version 2)
Quarter: 2020Q1

REPORT INFORMATION
  Report Type: Report from Study
  Country: US (occurrence: US)
  Receive Date: 20200224
  Receipt Date: 20200305
  Transmission Date: 20200409
  Serious: Yes (Hospitalization)
  Sender: FDA-Public Use
  Company Number: US-ROCHE-2549361

PATIENT
  Age: 43 Year
  Sex: Female
  Weight: 98.8 kg

DRUGS (1)
  1. OCREVUS [Suspect]
     Active Substance: OCRELIZUMAB
     Indication: RELAPSING-REMITTING MULTIPLE SCLEROSIS
     Dosage: 01/MAR/2018, 20/JUL/2018, 12/AUG/2018, 21/JAN/2019, 25/JAN/2019
     Route: 042
     Dates: start: 20180108

REACTIONS (4)
  - Intentional product use issue [Unknown]
  - Urinary tract infection [Recovering/Resolving]
  - Off label use [Unknown]
  - White blood cell count decreased [Unknown]

NARRATIVE: CASE EVENT DATE: 20200203
